FAERS Safety Report 24751356 (Version 1)
Quarter: 2024Q4

REPORT INFORMATION
  Report Type: Report from Study
  Country: US (occurrence: US)
  Receive Date: 20241219
  Receipt Date: 20241219
  Transmission Date: 20250114
  Serious: Yes (Other)
  Sender: INSMED
  Company Number: US-INSMED, INC.-2024-04984-US

PATIENT
  Sex: Male

DRUGS (1)
  1. ARIKAYCE [Suspect]
     Active Substance: AMIKACIN
     Indication: Product used for unknown indication
     Dosage: UNK, UNK
     Route: 055
     Dates: start: 20240628, end: 20241206

REACTIONS (4)
  - Toxicity to various agents [Unknown]
  - Eye disorder [Unknown]
  - Feeling abnormal [Not Recovered/Not Resolved]
  - Hypoacusis [Not Recovered/Not Resolved]

NARRATIVE: CASE EVENT DATE: 20240101
